FAERS Safety Report 15866368 (Version 2)
Quarter: 2019Q1

REPORT INFORMATION
  Report Type: Spontaneous
  Country: US (occurrence: US)
  Receive Date: 20190125
  Receipt Date: 20190329
  Transmission Date: 20190417
  Serious: No
  Sender: FDA-Public Use
  Company Number: US-PFIZER INC-2019026953

PATIENT

DRUGS (1)
  1. VANCOMYCIN HCL [Suspect]
     Active Substance: VANCOMYCIN HYDROCHLORIDE
     Dosage: 1 G, UNK
     Route: 042

REACTIONS (3)
  - Product complaint [Unknown]
  - Poor quality product administered [Unknown]
  - Product deposit [Unknown]
